FAERS Safety Report 23800880 (Version 2)
Quarter: 2024Q2

REPORT INFORMATION
  Report Type: Spontaneous
  Country: US (occurrence: US)
  Receive Date: 20240430
  Receipt Date: 20240430
  Transmission Date: 20240716
  Serious: No
  Sender: FDA-Public Use
  Company Number: US-SANDOZ-SDZ2024US011039

PATIENT
  Sex: Male

DRUGS (1)
  1. ALBUTEROL SULFATE [Suspect]
     Active Substance: ALBUTEROL SULFATE
     Indication: COVID-19 treatment
     Dosage: UNK, 2 PUFFS, EVERY 4 TO 6 HOURS, INHALATION AEROSOL
     Route: 048

REACTIONS (5)
  - Product quality issue [Unknown]
  - Product dispensing issue [Unknown]
  - Off label use [Unknown]
  - Product dose omission issue [Unknown]
  - Product prescribing error [Unknown]
